FAERS Safety Report 15005058 (Version 1)
Quarter: 2018Q2

REPORT INFORMATION
  Report Type: Spontaneous
  Country: US (occurrence: US)
  Receive Date: 20180613
  Receipt Date: 20180613
  Transmission Date: 20180711
  Serious: No
  Sender: FDA-Public Use
  Company Number: US-GLAXOSMITHKLINE-US2018104439

PATIENT
  Sex: Female

DRUGS (1)
  1. NUCALA [Suspect]
     Active Substance: MEPOLIZUMAB
     Route: 042

REACTIONS (4)
  - Back pain [Unknown]
  - Pain [Unknown]
  - Arthralgia [Unknown]
  - Musculoskeletal pain [Unknown]
